FAERS Safety Report 17188842 (Version 1)
Quarter: 2019Q4

REPORT INFORMATION
  Report Type: Other
  Country: US (occurrence: US)
  Receive Date: 20191222
  Receipt Date: 20191222
  Transmission Date: 20200122
  Serious: No
  Sender: FDA-Public Use
  Company Number: US-ACORDA-ACO_162708_2019

PATIENT
  Sex: Female

DRUGS (1)
  1. INBRIJA [Suspect]
     Active Substance: LEVODOPA
     Indication: ON AND OFF PHENOMENON
     Dosage: 84 MILLIGRAM, PRN (INHALE CONTENTS OF 2 CAPSULES OF 42MG A NEEDED FOR OFF PERIOD)
     Dates: start: 20191204

REACTIONS (1)
  - Throat irritation [Unknown]
